FAERS Safety Report 16887068 (Version 3)
Quarter: 2025Q1

REPORT INFORMATION
  Report Type: Spontaneous
  Country: AU (occurrence: AU)
  Receive Date: 20191004
  Receipt Date: 20250312
  Transmission Date: 20250409
  Serious: Yes (Other)
  Sender: PFIZER
  Company Number: AU-PFIZER INC-2019424404

PATIENT
  Age: 75 Year
  Sex: Male

DRUGS (2)
  1. METHOTREXATE (METHOTREXATE SODIUM) [Suspect]
     Active Substance: METHOTREXATE SODIUM
     Indication: Rheumatoid arthritis
  2. FOLIC ACID [Concomitant]
     Active Substance: FOLIC ACID

REACTIONS (8)
  - Bowen^s disease [Unknown]
  - Basal cell carcinoma [Unknown]
  - Malignant melanoma [Unknown]
  - Foot fracture [Unknown]
  - Arthralgia [Unknown]
  - Pain in extremity [Unknown]
  - Skin irritation [Unknown]
  - Pain [Unknown]
